FAERS Safety Report 5511910-6 (Version None)
Quarter: 2007Q4

REPORT INFORMATION
  Report Type: 
  Country: None (occurrence: None)
  Receive Date: 20071109
  Receipt Date: 20071030
  Transmission Date: 20080405
  Serious: Yes (Life-Threatening)
  Sender: FDA-Public Use
  Company Number: JP-PFIZER INC-2007091741

PATIENT
  Sex: Male
  Weight: 46.5 kg

DRUGS (7)
  1. NORVASC [Suspect]
     Indication: HYPERTENSION
     Dosage: DAILY DOSE:2.5MG-FREQ:DAILY
     Route: 042
     Dates: start: 20060101, end: 20070926
  2. ALPINYL [Suspect]
     Indication: PYREXIA
     Dosage: DAILY DOSE:600MG-TEXT:600 MG TOTAL DAILY DOSE
     Dates: start: 20070924, end: 20070924
  3. RYTHMODAN [Concomitant]
     Route: 048
     Dates: start: 20010101, end: 20070927
  4. WARFARIN SODIUM [Concomitant]
     Route: 048
     Dates: start: 20000101, end: 20070927
  5. PLETAL [Concomitant]
     Route: 047
     Dates: start: 20000101, end: 20070927
  6. TENORMIN [Concomitant]
     Route: 048
     Dates: start: 20060101, end: 20070926
  7. UNASYN [Concomitant]
     Dates: start: 20070901, end: 20070926

REACTIONS (3)
  - DISSEMINATED INTRAVASCULAR COAGULATION [None]
  - HEPATIC FUNCTION ABNORMAL [None]
  - RHABDOMYOLYSIS [None]
